FAERS Safety Report 6228653-6 (Version None)
Quarter: 2009Q2

REPORT INFORMATION
  Report Type: 
  Country: None (occurrence: None)
  Receive Date: 20090612
  Receipt Date: 20090609
  Transmission Date: 20091009
  Serious: Yes (Death)
  Sender: FDA-Public Use
  Company Number: JP-SANOFI-SYNTHELABO-F01200900458

PATIENT
  Sex: Male
  Weight: 55 kg

DRUGS (19)
  1. CEFAZOLIN [Concomitant]
     Dosage: 1 G
     Route: 042
     Dates: start: 20090209, end: 20090209
  2. ATARAX [Concomitant]
     Dosage: 1 OTHER
     Route: 042
     Dates: start: 20090209, end: 20090209
  3. ROHYPNOL [Concomitant]
     Dosage: 2 MG
     Route: 042
     Dates: start: 20090208, end: 20090208
  4. SERENACE [Concomitant]
     Dosage: 1 ML
     Route: 042
     Dates: start: 20090208, end: 20090208
  5. SIGMART [Concomitant]
     Indication: ANGINA UNSTABLE
     Dosage: 12 MG
     Route: 042
     Dates: start: 20090208, end: 20090208
  6. THEO-DUR [Concomitant]
     Route: 048
     Dates: start: 20090206, end: 20090213
  7. MUCODYNE [Concomitant]
     Route: 048
     Dates: start: 20090206, end: 20090213
  8. GASMOTIN [Concomitant]
     Route: 048
     Dates: start: 20090206, end: 20090213
  9. PANTOSIN [Concomitant]
     Route: 048
     Dates: start: 20090206, end: 20090213
  10. SENNOSIDE [Concomitant]
     Dosage: 12 MG
     Route: 048
     Dates: start: 20090206, end: 20090213
  11. GASTER D [Concomitant]
     Route: 048
     Dates: start: 20090206, end: 20090213
  12. DEPAS [Concomitant]
     Route: 048
     Dates: start: 20090206, end: 20090213
  13. SPIRIVA [Concomitant]
     Dosage: UNK
     Route: 055
     Dates: start: 20090206, end: 20090213
  14. SEREVENT [Concomitant]
     Route: 055
     Dates: start: 20090206, end: 20090213
  15. HEPARIN [Concomitant]
     Indication: ANGINA UNSTABLE
     Dosage: 1200 IU/HOUR
     Route: 042
     Dates: start: 20090208, end: 20090208
  16. ASPIRIN [Concomitant]
     Indication: ANGINA UNSTABLE
     Dosage: 100 MG
     Route: 048
     Dates: start: 20090205, end: 20090205
  17. ASPIRIN [Concomitant]
     Route: 048
     Dates: start: 20090206, end: 20090213
  18. CLOPIDOGREL [Suspect]
     Indication: ACUTE CORONARY SYNDROME
     Dosage: STARTING DOSE 300 MG
     Route: 048
     Dates: start: 20090206, end: 20090206
  19. CLOPIDOGREL [Suspect]
     Dosage: MAINTENANCE DOSE
     Route: 048
     Dates: start: 20090207, end: 20090213

REACTIONS (2)
  - CARDIAC DEATH [None]
  - THROMBOSIS IN DEVICE [None]
